FAERS Safety Report 20743540 (Version 3)
Quarter: 2022Q3

REPORT INFORMATION
  Report Type: Report from Study
  Country: US (occurrence: US)
  Receive Date: 20220425
  Receipt Date: 20220810
  Transmission Date: 20221027
  Serious: No
  Sender: FDA-Public Use
  Company Number: US-KYOWAKIRIN-2022BKK005613

PATIENT

DRUGS (1)
  1. NOURIANZ [Suspect]
     Active Substance: ISTRADEFYLLINE
     Indication: Parkinson^s disease
     Dosage: 20 MG, TWICE DAILY
     Route: 048
     Dates: start: 20200415

REACTIONS (5)
  - Urinary tract infection [Unknown]
  - Muscle spasms [Unknown]
  - Anxiety [Unknown]
  - Depression [Unknown]
  - Dyskinesia [Unknown]
